FAERS Safety Report 9870333 (Version 3)
Quarter: 2014Q2

REPORT INFORMATION
  Report Type: Report from Study
  Country: CA (occurrence: CA)
  Receive Date: 20140205
  Receipt Date: 20140418
  Transmission Date: 20141212
  Serious: Yes (Hospitalization)
  Sender: FDA-Public Use
  Company Number: CA-ABBVIE-14P-028-1196335-00

PATIENT
  Age: 47 Year
  Sex: Female

DRUGS (3)
  1. HUMIRA [Suspect]
     Indication: COLITIS ULCERATIVE
     Route: 058
     Dates: start: 20140112, end: 20140112
  2. HUMIRA [Suspect]
     Route: 058
     Dates: start: 20140202
  3. TYLENOL W/CODEINE NO. 3 [Concomitant]
     Indication: PAIN
     Route: 048

REACTIONS (2)
  - Intestinal obstruction [Recovered/Resolved]
  - Colitis [Not Recovered/Not Resolved]
